FAERS Safety Report 14250264 (Version 1)
Quarter: 2017Q4

REPORT INFORMATION
  Report Type: Spontaneous
  Country: US (occurrence: US)
  Receive Date: 20171205
  Receipt Date: 20171205
  Transmission Date: 20180321
  Serious: No
  Sender: FDA-Public Use
  Company Number: US-WEST-WARD PHARMACEUTICALS CORP.-US-H14001-16-03119

PATIENT
  Sex: Male

DRUGS (1)
  1. IPRATROPIUM BROMIDE NASAL SOLUTION 0.06% [Suspect]
     Active Substance: IPRATROPIUM BROMIDE
     Indication: RHINORRHOEA
     Route: 045
     Dates: start: 2015

REACTIONS (1)
  - Drug ineffective [Not Recovered/Not Resolved]
